FAERS Safety Report 6035709-X (Version None)
Quarter: 2009Q1

REPORT INFORMATION
  Report Type: 
  Country: None (occurrence: None)
  Receive Date: 20090113
  Receipt Date: 20090102
  Transmission Date: 20090719
  Serious: Yes (Hospitalization, Other)
  Sender: FDA-Public Use
  Company Number: PHHO2007MX10760

PATIENT
  Age: 55 Year
  Sex: Male

DRUGS (2)
  1. DIOVAN [Suspect]
     Indication: HYPERTENSION
     Dosage: 2 TABLETS (160MG)  DAILY
     Route: 048
     Dates: start: 20060901
  2. INSULIN [Concomitant]
     Indication: DIABETES MELLITUS
     Dosage: 20 IU IN THE MORNING AND 10 IU IN THE NIGHT

REACTIONS (9)
  - BLOOD PRESSURE ABNORMAL [None]
  - DIABETIC COMPLICATION [None]
  - DRUG INEFFECTIVE [None]
  - HAEMODIALYSIS [None]
  - METABOLIC DISORDER [None]
  - POLYDIPSIA [None]
  - POLYURIA [None]
  - RENAL DISORDER [None]
  - VOMITING [None]
